FAERS Safety Report 6635419-1 (Version None)
Quarter: 2010Q1

REPORT INFORMATION
  Report Type: 
  Country: None (occurrence: None)
  Receive Date: 20100315
  Receipt Date: 20090915
  Transmission Date: 20100710
  Serious: No
  Sender: FDA-Public Use
  Company Number: US-ABBOTT-09P-163-0598151-00

PATIENT
  Age: 34 Year
  Sex: Male

DRUGS (5)
  1. DEPAKOTE [Suspect]
     Indication: AGGRESSION
     Route: 048
     Dates: end: 20090911
  2. DEPAKOTE [Suspect]
     Indication: PSYCHOTIC DISORDER
  3. DEPAKENE [Suspect]
     Indication: AGGRESSION
     Route: 048
     Dates: start: 20090911
  4. DEPAKENE [Suspect]
     Indication: PSYCHOTIC DISORDER
  5. ZYPREXA [Concomitant]
     Indication: SCHIZOPHRENIA
     Dosage: DAILY
     Dates: start: 20090903

REACTIONS (3)
  - GASTRITIS [None]
  - INAPPROPRIATE SCHEDULE OF DRUG ADMINISTRATION [None]
  - OESOPHAGITIS [None]
